FAERS Safety Report 7257123-1 (Version None)
Quarter: 2011Q1

REPORT INFORMATION
  Report Type: 
  Country: None (occurrence: None)
  Receive Date: 20110129
  Receipt Date: 20100802
  Transmission Date: 20110831
  Serious: No
  Sender: FDA-Public Use
  Company Number: US-ABBOTT-10P-163-0661203-00

PATIENT
  Age: 46 Year
  Sex: Male

DRUGS (5)
  1. RANITIDINE [Concomitant]
     Indication: GASTRITIS
  2. HYDROCODONE [Concomitant]
     Indication: PAIN
     Dosage: 10/500MG 5 IN 1 D
  3. STOOL SOFTENER AND ANIT-GAS [Concomitant]
     Indication: PRODUCT USED FOR UNKNOWN INDICATION
  4. HUMIRA [Suspect]
     Indication: CROHN'S DISEASE
     Dates: start: 20100401
  5. PHENERGAN [Concomitant]
     Indication: NAUSEA

REACTIONS (1)
  - INJECTION SITE SWELLING [None]
